FAERS Safety Report 13162413 (Version 2)
Quarter: 2017Q1

REPORT INFORMATION
  Report Type: Spontaneous
  Country: CA (occurrence: CA)
  Receive Date: 20170130
  Receipt Date: 20170216
  Transmission Date: 20170428
  Serious: Yes (Death, Hospitalization, Other)
  Sender: FDA-Public Use
  Company Number: CA-009507513-1701CAN011336

PATIENT
  Age: 66 Year
  Sex: Male
  Weight: 93.5 kg

DRUGS (1)
  1. KEYTRUDA [Suspect]
     Active Substance: PEMBROLIZUMAB
     Indication: LUNG CANCER METASTATIC
     Dosage: 187 MG, Q3W (1 DOSE)
     Route: 042
     Dates: start: 20161222

REACTIONS (6)
  - Impaired self-care [Fatal]
  - General physical health deterioration [Fatal]
  - Malignant neoplasm progression [Fatal]
  - Fall [Fatal]
  - Pulmonary embolism [Fatal]
  - Joint dislocation [Unknown]

NARRATIVE: CASE EVENT DATE: 20161229
